FAERS Safety Report 10508544 (Version 2)
Quarter: 2014Q4

REPORT INFORMATION
  Report Type: Report from Study
  Country: US (occurrence: US)
  Receive Date: 20141009
  Receipt Date: 20141009
  Transmission Date: 20150528
  Serious: Yes (Hospitalization)
  Sender: FDA-Public Use
  Company Number: US-SA-2014SA129038

PATIENT
  Age: 84 Year
  Sex: Female

DRUGS (7)
  1. LANTUS SOLOSTAR [Suspect]
     Active Substance: INSULIN GLARGINE
     Indication: TYPE 2 DIABETES MELLITUS
     Dosage: DOSE:18 UNIT(S)
     Route: 065
     Dates: start: 2014
  2. LANTUS SOLOSTAR [Suspect]
     Active Substance: INSULIN GLARGINE
     Indication: TYPE 2 DIABETES MELLITUS
     Dosage: DOSE:22 UNIT(S)
     Route: 065
     Dates: start: 2014
  3. LANTUS SOLOSTAR [Suspect]
     Active Substance: INSULIN GLARGINE
     Indication: TYPE 2 DIABETES MELLITUS
     Dosage: DOSE:15 UNIT(S)
     Route: 065
  4. HUMALOG [Concomitant]
     Active Substance: INSULIN LISPRO
  5. NOVOLOG [Concomitant]
     Active Substance: INSULIN ASPART
  6. LANTUS SOLOSTAR [Suspect]
     Active Substance: INSULIN GLARGINE
     Indication: TYPE 2 DIABETES MELLITUS
     Dosage: DOSE:25 UNIT(S)
     Route: 065
  7. SOLOSTAR [Concomitant]
     Active Substance: DEVICE
     Indication: TYPE 2 DIABETES MELLITUS
     Dates: start: 2014

REACTIONS (10)
  - General physical health deterioration [Unknown]
  - Hypoglycaemia [Unknown]
  - Dyspnoea [Unknown]
  - Blood glucose increased [Unknown]
  - Asthenia [Unknown]
  - Gait disturbance [Unknown]
  - Arthritis [Unknown]
  - Cough [Unknown]
  - Cardiac failure [Unknown]
  - Confusional state [Unknown]

NARRATIVE: CASE EVENT DATE: 201301
